FAERS Safety Report 9324034 (Version 1)
Quarter: 2013Q2

REPORT INFORMATION
  Report Type: Spontaneous
  Country: US (occurrence: US)
  Receive Date: 20130603
  Receipt Date: 20130603
  Transmission Date: 20140414
  Serious: No
  Sender: FDA-Public Use
  Company Number: US-VERTEX PHARMACEUTICALS INC-2013-006528

PATIENT
  Age: 3 Year
  Sex: Female

DRUGS (1)
  1. INCIVEK [Suspect]
     Dosage: UNK
     Route: 048
     Dates: start: 20130525, end: 20130525

REACTIONS (1)
  - Accidental exposure to product by child [Unknown]
